FAERS Safety Report 14243559 (Version 2)
Quarter: 2018Q1

REPORT INFORMATION
  Report Type: Spontaneous
  Country: IT (occurrence: IT)
  Receive Date: 20171201
  Receipt Date: 20180111
  Transmission Date: 20180508
  Serious: Yes (Death, Other)
  Sender: FDA-Public Use
  Company Number: IT-MYLANLABS-2017M1075342

PATIENT
  Age: 5 Decade
  Sex: Female

DRUGS (2)
  1. CLOZAPINE. [Suspect]
     Active Substance: CLOZAPINE
     Indication: SCHIZOPHRENIA
     Dosage: 300MG (3 TABLET X 100 MG)
     Route: 048
  2. LORAZEPAM. [Concomitant]
     Active Substance: LORAZEPAM
     Indication: SCHIZOPHRENIA
     Dosage: 10MG (4 TABLETS X 2.5 MG)
     Route: 065

REACTIONS (3)
  - Antipsychotic drug level above therapeutic [Unknown]
  - Asphyxia [Fatal]
  - Sedation [Unknown]

NARRATIVE: CASE EVENT DATE: 201001
